FAERS Safety Report 6633119-5 (Version None)
Quarter: 2010Q1

REPORT INFORMATION
  Report Type: 
  Country: None (occurrence: None)
  Receive Date: 20100312
  Receipt Date: 20100302
  Transmission Date: 20100710
  Serious: Yes (Other)
  Sender: FDA-Public Use
  Company Number: PHHY2010JP10863

PATIENT
  Age: 68 Year
  Sex: Male
  Weight: 60 kg

DRUGS (7)
  1. ZOMETA [Suspect]
     Indication: METASTASES TO BONE
     Dosage: 4 MG, QMO
     Route: 042
     Dates: start: 20090201, end: 20100114
  2. TAXOTERE [Concomitant]
     Dosage: UNK
     Route: 042
  3. ZOLADEX [Concomitant]
     Route: 042
  4. CASODEX [Concomitant]
     Route: 048
  5. DECADRON [Concomitant]
     Route: 048
  6. DOCETAXEL HYDRATE [Concomitant]
  7. METHYCOBAL [Concomitant]
     Route: 048

REACTIONS (4)
  - BONE LESION [None]
  - OSTEOMYELITIS [None]
  - OSTEONECROSIS [None]
  - SEQUESTRECTOMY [None]
